FAERS Safety Report 4968534-9 (Version None)
Quarter: 2006Q2

REPORT INFORMATION
  Report Type: 
  Country: None (occurrence: None)
  Receive Date: 20060410
  Receipt Date: 20060330
  Transmission Date: 20061013
  Serious: Yes (Hospitalization)
  Sender: FDA-Public Use
  Company Number: US-MERCK-0604USA00165

PATIENT
  Age: 61 Year
  Sex: Male
  Weight: 109 kg

DRUGS (9)
  1. VIOXX [Suspect]
     Indication: ARTHRALGIA
     Route: 048
     Dates: start: 20000808, end: 20031004
  2. VIOXX [Suspect]
     Indication: OSTEOARTHRITIS
     Route: 048
     Dates: start: 20000808, end: 20031004
  3. ACCUPRIL [Concomitant]
     Route: 065
     Dates: start: 20000901, end: 20041201
  4. LESCOL [Concomitant]
     Indication: BLOOD CHOLESTEROL
     Route: 065
     Dates: start: 19980101, end: 20030401
  5. CLONAZEPAM [Concomitant]
     Indication: MUSCLE SPASMS
     Route: 065
  6. EXCEDRIN IB [Concomitant]
     Indication: HEADACHE
     Route: 065
  7. EXCEDRIN IB [Concomitant]
     Indication: PAIN
     Route: 065
  8. ATENOLOL [Concomitant]
     Indication: HYPERTENSION
     Route: 065
     Dates: start: 19991101, end: 20040701
  9. ASPIRIN [Concomitant]
     Route: 065
     Dates: start: 20030201

REACTIONS (5)
  - CARDIAC DISORDER [None]
  - CORONARY ARTERIAL STENT INSERTION [None]
  - CORONARY ARTERY OCCLUSION [None]
  - SLEEP APNOEA SYNDROME [None]
  - STAPHYLOCOCCAL INFECTION [None]
